FAERS Safety Report 4656486-0 (Version None)
Quarter: 2005Q2

REPORT INFORMATION
  Report Type: 
  Country: None (occurrence: None)
  Receive Date: 20050504
  Receipt Date: 20050422
  Transmission Date: 20051028
  Serious: Yes (Disabling)
  Sender: FDA-Public Use
  Company Number: 05P-163-0298295-00

PATIENT
  Age: 47 Year
  Sex: Female
  Weight: 68.0396 kg

DRUGS (3)
  1. DEPAKOTE [Suspect]
     Indication: MANIA
     Dosage: 250 MG, 3 IN 1 D, PER ORAL
     Route: 048
     Dates: start: 20050324, end: 20050330
  2. INFLIXIMAB [Concomitant]
  3. MESALAMINE [Concomitant]

REACTIONS (9)
  - BODY TEMPERATURE INCREASED [None]
  - CONFUSIONAL STATE [None]
  - DYSARTHRIA [None]
  - GAIT DISTURBANCE [None]
  - INSOMNIA [None]
  - LOSS OF EMPLOYMENT [None]
  - MUSCLE RIGIDITY [None]
  - PAIN IN EXTREMITY [None]
  - THINKING ABNORMAL [None]
